FAERS Safety Report 5896145-X (Version None)
Quarter: 2008Q3

REPORT INFORMATION
  Report Type: 
  Country: None (occurrence: None)
  Receive Date: 20080924
  Receipt Date: 20071212
  Transmission Date: 20090109
  Serious: Yes (Hospitalization)
  Sender: FDA-Public Use
  Company Number: US-ASTRAZENECA-2007UW13893

PATIENT
  Age: 9012 Day
  Sex: Female
  Weight: 86.2 kg

DRUGS (4)
  1. SEROQUEL [Suspect]
     Indication: BIPOLAR DISORDER
     Route: 048
     Dates: start: 20030101
  2. HALDOL [Concomitant]
     Dates: start: 20061101
  3. WELLBUTRIN XL [Concomitant]
     Dosage: 150 TO 300 MG
     Dates: start: 20060801
  4. RISPERDAL [Concomitant]
     Dates: start: 20031013, end: 20031125

REACTIONS (2)
  - OBSESSIVE-COMPULSIVE DISORDER [None]
  - PANCREATITIS CHRONIC [None]
